FAERS Safety Report 12829258 (Version 2)
Quarter: 2019Q4

REPORT INFORMATION
  Report Type: Spontaneous
  Country: US (occurrence: US)
  Receive Date: 20161007
  Receipt Date: 20191126
  Transmission Date: 20200122
  Serious: No
  Sender: FDA-Public Use
  Company Number: US-SA-2016SA020319

PATIENT
  Age: 40 Year
  Sex: Female
  Weight: 101.59 kg

DRUGS (3)
  1. ORENCIA [Concomitant]
     Active Substance: ABATACEPT
     Dosage: 125 MG,UNK
     Route: 058
  2. AUBAGIO [Suspect]
     Active Substance: TERIFLUNOMIDE
     Indication: MULTIPLE SCLEROSIS
     Dosage: 14 MG,QD
     Route: 048
     Dates: start: 20131113
  3. AUBAGIO [Suspect]
     Active Substance: TERIFLUNOMIDE
     Dosage: 14 MG, QD
     Route: 048
     Dates: start: 20131211

REACTIONS (1)
  - Dizziness [Not Recovered/Not Resolved]

NARRATIVE: CASE EVENT DATE: 20160117
